FAERS Safety Report 22337127 (Version 1)
Quarter: 2023Q2

REPORT INFORMATION
  Report Type: Report from Study
  Country: ZA (occurrence: ZA)
  Receive Date: 20230518
  Receipt Date: 20230518
  Transmission Date: 20230721
  Serious: Yes (Hospitalization)
  Sender: FDA-Public Use
  Company Number: ZA-BAYER-2023A068331

PATIENT
  Sex: Female

DRUGS (3)
  1. EYLEA [Suspect]
     Active Substance: AFLIBERCEPT
     Indication: Neovascular age-related macular degeneration
     Dosage: UNK SOLUTION FOR INJECTION
     Dates: start: 20230222, end: 20230222
  2. EYLEA [Suspect]
     Active Substance: AFLIBERCEPT
     Dosage: UNK SOLUTION FOR INJECTION
     Dates: start: 20230404, end: 20230404
  3. EYLEA [Suspect]
     Active Substance: AFLIBERCEPT
     Dosage: UNK SOLUTION FOR INJECTION
     Dates: start: 20230515, end: 20230515

REACTIONS (2)
  - Hospitalisation [Unknown]
  - Inappropriate schedule of product administration [Unknown]
